FAERS Safety Report 8833484 (Version 2)
Quarter: 2012Q4

REPORT INFORMATION
  Report Type: 
  Country: US (occurrence: US)
  Receive Date: 20121010
  Receipt Date: 20121019
  Transmission Date: 20130627
  Serious: No
  Sender: FDA-Public Use
  Company Number: US-VERTEX PHARMACEUTICAL INC.-2012-021973

PATIENT
  Age: 52 None
  Sex: Female
  Weight: 104 kg

DRUGS (4)
  1. VX-950 [Suspect]
     Indication: HEPATITIS C
     Dosage: 750 mg, tid
     Route: 048
     Dates: start: 20120920
  2. PEGASYS [Suspect]
     Indication: HEPATITIS C
     Dosage: 180 ?g, WEEKLY
     Route: 058
     Dates: start: 20120920
  3. RIBAVIRIN [Concomitant]
     Indication: HEPATITIS C
     Dosage: 800 mg in AM and 600 mg in PM
     Dates: start: 20120920
  4. RIBAVIRIN [Concomitant]
     Dosage: 2 tabs in am, 1 in pm
     Route: 048
     Dates: start: 20121011

REACTIONS (4)
  - Weight decreased [Not Recovered/Not Resolved]
  - Injection site erythema [Not Recovered/Not Resolved]
  - Haemoglobin decreased [Not Recovered/Not Resolved]
  - Nausea [Not Recovered/Not Resolved]
